FAERS Safety Report 10249299 (Version 1)
Quarter: 2014Q2

REPORT INFORMATION
  Report Type: Spontaneous
  Country: US (occurrence: US)
  Receive Date: 20140620
  Receipt Date: 20140620
  Transmission Date: 20141212
  Serious: Yes (Other)
  Sender: FDA-Public Use
  Company Number: US-ASTRAZENECA-2014SE41127

PATIENT
  Age: 74 Year
  Sex: Male

DRUGS (3)
  1. BRILINTA [Suspect]
     Indication: ACUTE CORONARY SYNDROME
     Route: 048
     Dates: start: 20140611
  2. AMLODIPINE [Concomitant]
     Dosage: UNKNOWN UNK
  3. SIMVASTATIN [Concomitant]
     Dosage: UNKNOWN UNK

REACTIONS (1)
  - Heart rate decreased [Recovered/Resolved]
